FAERS Safety Report 6430702-7 (Version None)
Quarter: 2009Q4

REPORT INFORMATION
  Report Type: 
  Country: None (occurrence: None)
  Receive Date: 20091104
  Receipt Date: 20091022
  Transmission Date: 20100525
  Serious: Yes (Hospitalization)
  Sender: FDA-Public Use
  Company Number: 231230J09USA

PATIENT
  Age: 26 Year
  Sex: Female
  Weight: 88 kg

DRUGS (7)
  1. REBIF [Suspect]
     Indication: MULTIPLE SCLEROSIS
     Dosage: 44 MCG, 3 IN 1 WEEKS, SUBCUTANEOUS
     Route: 058
     Dates: start: 20080624, end: 20090904
  2. VITAMIN B12 [Concomitant]
  3. CELEXA [Concomitant]
  4. OMEGA 3 VITAMIN (FISH OIL) [Concomitant]
  5. ZOCOR [Concomitant]
  6. VITAMIN D [Concomitant]
  7. BACTRIM [Concomitant]

REACTIONS (9)
  - DIZZINESS [None]
  - EXTRASYSTOLES [None]
  - FALL [None]
  - MUSCULOSKELETAL PAIN [None]
  - RIGHT VENTRICULAR DYSFUNCTION [None]
  - UNRESPONSIVE TO STIMULI [None]
  - VENTRICULAR TACHYCARDIA [None]
  - VITAMIN B12 DECREASED [None]
  - VITAMIN D DECREASED [None]
